FAERS Safety Report 15782519 (Version 1)
Quarter: 2019Q1

REPORT INFORMATION
  Report Type: Spontaneous
  Country: US (occurrence: US)
  Receive Date: 20190102
  Receipt Date: 20190102
  Transmission Date: 20190417
  Serious: Yes (Death)
  Sender: FDA-Public Use
  Company Number: US-PFIZER INC-2018490118

PATIENT
  Age: 63 Year
  Sex: Female

DRUGS (1)
  1. IBRANCE [Suspect]
     Active Substance: PALBOCICLIB
     Indication: NEOPLASM MALIGNANT
     Dosage: UNK UNK, CYCLIC (DAYS 1, 8, AND 15)
     Route: 048
     Dates: start: 20180531, end: 20180718

REACTIONS (1)
  - Death [Fatal]

NARRATIVE: CASE EVENT DATE: 20180718
